FAERS Safety Report 13243427 (Version 2)
Quarter: 2017Q2

REPORT INFORMATION
  Report Type: Spontaneous
  Country: DE (occurrence: DE)
  Receive Date: 20170217
  Receipt Date: 20170427
  Transmission Date: 20170830
  Serious: Yes (Other)
  Sender: FDA-Public Use
  Company Number: PHHY2017DE021616

PATIENT
  Sex: Female

DRUGS (2)
  1. ACLASTA [Suspect]
     Active Substance: ZOLEDRONIC ACID
     Indication: OSTEOPOROSIS
     Dosage: UNK
     Route: 065
     Dates: start: 201601
  2. PARACETAMOL [Concomitant]
     Active Substance: ACETAMINOPHEN
     Indication: PROPHYLAXIS
     Route: 065

REACTIONS (6)
  - Cerebrovascular accident [Unknown]
  - Pyrexia [Unknown]
  - Dyskinesia [Unknown]
  - Palpitations [Unknown]
  - Memory impairment [Unknown]
  - Chills [Unknown]

NARRATIVE: CASE EVENT DATE: 201601
